FAERS Safety Report 6237059-5 (Version None)
Quarter: 2009Q2

REPORT INFORMATION
  Report Type: 
  Country: None (occurrence: None)
  Receive Date: 20090619
  Receipt Date: 20090514
  Transmission Date: 20091009
  Serious: No
  Sender: FDA-Public Use
  Company Number: US-ASTRAZENECA-2009UW12552

PATIENT
  Age: 29765 Day
  Sex: Female

DRUGS (3)
  1. SYMBICORT [Suspect]
     Dosage: 2 PUFFS, 160/4.5MG
     Route: 055
     Dates: start: 20090501
  2. AVAPRO [Concomitant]
  3. ZITHROMAX [Concomitant]

REACTIONS (4)
  - CHEST DISCOMFORT [None]
  - COUGH [None]
  - HEART RATE INCREASED [None]
  - MUSCLE STRAIN [None]
